FAERS Safety Report 7027700-1 (Version None)
Quarter: 2010Q4

REPORT INFORMATION
  Report Type: 
  Country: None (occurrence: None)
  Receive Date: 20101004
  Receipt Date: 20100924
  Transmission Date: 20110411
  Serious: Yes (Other)
  Sender: FDA-Public Use
  Company Number: US-AMGEN-QUU437707

PATIENT
  Sex: Male
  Weight: 111.2 kg

DRUGS (6)
  1. NPLATE [Suspect]
     Indication: IDIOPATHIC THROMBOCYTOPENIC PURPURA
     Route: 058
     Dates: start: 20100115, end: 20100315
  2. WINRHO [Concomitant]
     Dates: start: 20051228
  3. CARDURA [Concomitant]
     Route: 048
     Dates: start: 20020305
  4. DESOXIMETASONE [Concomitant]
     Route: 061
     Dates: start: 20090122
  5. COREG [Concomitant]
     Route: 048
     Dates: start: 20080421
  6. MICARDIS [Concomitant]
     Route: 048
     Dates: start: 20080825

REACTIONS (1)
  - THROMBOCYTOPENIA [None]
